FAERS Safety Report 14370663 (Version 1)
Quarter: 2018Q1

REPORT INFORMATION
  Report Type: Spontaneous
  Country: US (occurrence: US)
  Receive Date: 20180110
  Receipt Date: 20180110
  Transmission Date: 20180509
  Serious: No
  Sender: FDA-Public Use
  Company Number: US-PFIZER INC-2018005123

PATIENT
  Age: 45 Year
  Sex: Male
  Weight: 117.93 kg

DRUGS (2)
  1. VIAGRA [Suspect]
     Active Substance: SILDENAFIL CITRATE
     Indication: ERECTILE DYSFUNCTION
     Dosage: 100 MG, UNK
     Dates: start: 201712
  2. TESTOSTERONE SUPPLEMENT [Concomitant]
     Indication: ANDROGEN DEFICIENCY
     Dosage: UNK

REACTIONS (2)
  - Drug ineffective [Recovered/Resolved]
  - Prescription drug used without a prescription [Unknown]

NARRATIVE: CASE EVENT DATE: 201712
